FAERS Safety Report 9878583 (Version 2)
Quarter: 2014Q1

REPORT INFORMATION
  Report Type: Spontaneous
  Country: US (occurrence: US)
  Receive Date: 20140206
  Receipt Date: 20140206
  Transmission Date: 20141002
  Serious: No
  Sender: FDA-Public Use
  Company Number: US-ALLERGAN-1312336US

PATIENT
  Age: 48 Year
  Sex: Female

DRUGS (6)
  1. BOTOX [Suspect]
     Indication: MIGRAINE
     Dosage: UNK, SINGLE
     Route: 030
     Dates: start: 201307, end: 201307
  2. BOTOX [Suspect]
     Dosage: UNK, SINGLE
     Route: 030
     Dates: start: 201302, end: 201302
  3. CELLCEPT                           /01275102/ [Concomitant]
     Indication: CUTANEOUS LUPUS ERYTHEMATOSUS
     Dosage: UNK
     Dates: start: 2007
  4. DOXYCYCLINE [Concomitant]
     Indication: CUTANEOUS LUPUS ERYTHEMATOSUS
     Dosage: UNK
     Dates: start: 2007
  5. PLAQUENIL                          /00072602/ [Concomitant]
     Indication: CUTANEOUS LUPUS ERYTHEMATOSUS
     Dosage: UNK
     Dates: start: 2007
  6. LEXAPRO [Concomitant]
     Indication: DEPRESSION
     Dosage: UNK
     Dates: start: 2007

REACTIONS (9)
  - Emergency care [Unknown]
  - Chest discomfort [Recovering/Resolving]
  - Muscular weakness [Recovered/Resolved]
  - Neck pain [Not Recovered/Not Resolved]
  - Back pain [Not Recovered/Not Resolved]
  - Nausea [Recovering/Resolving]
  - Vision blurred [Recovering/Resolving]
  - Dysphagia [Not Recovered/Not Resolved]
  - Dysarthria [Recovered/Resolved]
